FAERS Safety Report 14992777 (Version 1)
Quarter: 2018Q2

REPORT INFORMATION
  Report Type: Spontaneous
  Country: DE (occurrence: DE)
  Receive Date: 20180609
  Receipt Date: 20180609
  Transmission Date: 20180711
  Serious: Yes (Hospitalization)
  Sender: FDA-Public Use
  Company Number: DE-TEVA-2018-DE-903154

PATIENT
  Age: 32 Year
  Sex: Female
  Weight: 64 kg

DRUGS (13)
  1. DEXAMETHASONE. [Concomitant]
     Active Substance: DEXAMETHASONE
     Dosage: INJECTION / INFUSIONSL?SUNG
     Route: 037
  2. CIPROFLOXACIN. [Concomitant]
     Active Substance: CIPROFLOXACIN
     Dosage: 1-0-1-0
     Route: 048
  3. PANTOPRAZOL [Concomitant]
     Active Substance: PANTOPRAZOLE SODIUM
     Dosage: 1-0-0-0
     Route: 048
  4. METHOTREXATE. [Suspect]
     Active Substance: METHOTREXATE
     Dosage: INJECTION / INFUSIONSL?SUNG
     Route: 042
  5. SULFAMETHOXAZOLE W/TRIMETHOPRIM [Concomitant]
     Active Substance: SULFAMETHOXAZOLE\TRIMETHOPRIM
     Dosage: 800|160 MG, 1-0-0-0
     Route: 048
  6. ETOPOSIDE. [Suspect]
     Active Substance: ETOPOSIDE
     Dosage: INJECTION / INFUSIONSL?SUNG
     Route: 042
  7. PROGESTERON [Concomitant]
     Active Substance: PROGESTERONE
     Dosage: 1-0-0-0
     Route: 048
  8. METHOTREXATE. [Concomitant]
     Active Substance: METHOTREXATE
     Dosage: INJECTION / INFUSIONSL?SUNG
     Route: 037
  9. CYCLOPHOSPHAMIDE. [Suspect]
     Active Substance: CYCLOPHOSPHAMIDE
     Dosage: INJECTION / INFUSIONSL?SUNG
     Route: 042
  10. VINCRISTINE [Suspect]
     Active Substance: VINCRISTINE
     Dosage: INJECTION / INFUSIONSL?SUNG
     Route: 042
  11. IFOSFAMID [Suspect]
     Active Substance: IFOSFAMIDE
     Dosage: INJECTION / INFUSIONSL?SUNG
     Route: 042
  12. CYTARABINE. [Concomitant]
     Active Substance: CYTARABINE
     Dosage: INJECTION / INFUSIONSL?SUNG
     Route: 037
  13. AMPHOTERICIN B. [Concomitant]
     Active Substance: AMPHOTERICIN B
     Dosage: 0.25 BOTTLE, 1-1-1-1, JUICE
     Route: 048

REACTIONS (3)
  - Pain [Unknown]
  - General physical health deterioration [Unknown]
  - Stomatitis [Unknown]
